FAERS Safety Report 13118088 (Version 1)
Quarter: 2017Q1

REPORT INFORMATION
  Report Type: Spontaneous
  Country: US (occurrence: US)
  Receive Date: 20170116
  Receipt Date: 20170116
  Transmission Date: 20170428
  Serious: Yes (Other)
  Sender: FDA-Public Use
  Company Number: US-JNJFOC-20161213763

PATIENT
  Sex: Female
  Weight: 58.51 kg

DRUGS (3)
  1. PROZAC [Concomitant]
     Active Substance: FLUOXETINE HYDROCHLORIDE
     Route: 048
     Dates: start: 201602, end: 201609
  2. RISPERDAL [Suspect]
     Active Substance: RISPERIDONE
     Indication: MAJOR DEPRESSION
     Route: 048
     Dates: start: 201605, end: 201609
  3. DEPO-PROVERA [Suspect]
     Active Substance: MEDROXYPROGESTERONE ACETATE
     Indication: CONTRACEPTION
     Route: 065
     Dates: start: 201607, end: 201610

REACTIONS (4)
  - Urinary tract infection [Recovered/Resolved]
  - Treatment noncompliance [Unknown]
  - Pharyngitis streptococcal [Recovered/Resolved]
  - Galactorrhoea [Not Recovered/Not Resolved]

NARRATIVE: CASE EVENT DATE: 2016
